FAERS Safety Report 8324955-8 (Version None)
Quarter: 2012Q2

REPORT INFORMATION
  Report Type: 
  Country: None (occurrence: None)
  Receive Date: 20120427
  Receipt Date: 20120418
  Transmission Date: 20120825
  Serious: Yes (Life-Threatening, Hospitalization)
  Sender: FDA-Public Use
  Company Number: DKLU1078588

PATIENT
  Age: 30 Year
  Sex: Male

DRUGS (1)
  1. ELSPAR [Suspect]
     Indication: ACUTE LYMPHOCYTIC LEUKAEMIA

REACTIONS (4)
  - CEREBRAL VENOUS THROMBOSIS [None]
  - BRAIN HERNIATION [None]
  - HAEMORRHAGIC STROKE [None]
  - CEREBRAL INFARCTION [None]
